FAERS Safety Report 5876946-4 (Version None)
Quarter: 2008Q3

REPORT INFORMATION
  Report Type: 
  Country: None (occurrence: None)
  Receive Date: 20080908
  Receipt Date: 20080908
  Transmission Date: 20090109
  Serious: No
  Sender: FDA-Public Use
  Company Number: None

PATIENT
  Age: 63 Year
  Sex: Male
  Weight: 154.223 kg

DRUGS (1)
  1. XENICAL [Suspect]
     Dosage: 1  3 TIMES A-DAY PO  (DURATION: SEVERAL YEARS)
     Route: 048
     Dates: start: 20060101, end: 20080906

REACTIONS (4)
  - FLATULENCE [None]
  - PHARMACEUTICAL PRODUCT COMPLAINT [None]
  - POOR QUALITY DRUG ADMINISTERED [None]
  - THERAPEUTIC RESPONSE DECREASED [None]
